FAERS Safety Report 9886573 (Version 1)
Quarter: 2014Q1

REPORT INFORMATION
  Report Type: Spontaneous
  Country: US (occurrence: US)
  Receive Date: 20140210
  Receipt Date: 20140210
  Transmission Date: 20141002
  Serious: Yes (Death)
  Sender: FDA-Public Use
  Company Number: US-ELI_LILLY_AND_COMPANY-US201402000852

PATIENT
  Sex: Female

DRUGS (1)
  1. HUMULIN NPH [Suspect]
     Indication: DIABETES MELLITUS
     Route: 065

REACTIONS (1)
  - Death [Fatal]
